FAERS Safety Report 17690371 (Version 9)
Quarter: 2021Q1

REPORT INFORMATION
  Report Type: Report from Study
  Country: CO (occurrence: CO)
  Receive Date: 20200421
  Receipt Date: 20210213
  Transmission Date: 20210419
  Serious: Yes (Hospitalization, Other)
  Sender: FDA-Public Use
  Company Number: CO-AMGEN-COLSL2020064655

PATIENT
  Age: 59 Year
  Sex: Female

DRUGS (6)
  1. VECTIBIX [Suspect]
     Active Substance: PANITUMUMAB
     Dosage: 420 MILLIGRAM, Q2WK (BIWEEKLY)
     Route: 042
     Dates: start: 20201226, end: 20210109
  2. CETAPHIL [CETYL ALCOHOL;PROPYLENE GLYCOL;SODIUM LAURYL SULFATE;STEARYL [Concomitant]
     Dosage: UNK
     Dates: start: 20200902
  3. VECTIBIX [Suspect]
     Active Substance: PANITUMUMAB
     Indication: COLORECTAL CANCER METASTATIC
     Dosage: 420 MILLIGRAM, Q3WK (EVERY 21 DAYS)
     Route: 042
     Dates: start: 20190326, end: 20201116
  4. DOXYCYCLINE. [Concomitant]
     Active Substance: DOXYCYCLINE
     Dosage: 100 MILLIGRAM
     Dates: start: 20200902
  5. SUNSTOP [ENZACAMENE D?L FORM;OCTINOXATE] [Concomitant]
     Dosage: UNK
     Dates: start: 20200902
  6. DESONIDE. [Concomitant]
     Active Substance: DESONIDE
     Dosage: UNK
     Dates: start: 20200902

REACTIONS (5)
  - Rash [Recovering/Resolving]
  - Acne [Recovered/Resolved]
  - Explorative laparotomy [Recovered/Resolved]
  - Off label use [Unknown]
  - Urinary tract infection [Recovered/Resolved]

NARRATIVE: CASE EVENT DATE: 20190326
